FAERS Safety Report 19455666 (Version 1)
Quarter: 2021Q2

REPORT INFORMATION
  Report Type: Spontaneous
  Country: US (occurrence: US)
  Receive Date: 20210623
  Receipt Date: 20210623
  Transmission Date: 20210717
  Serious: Yes (Other)
  Sender: FDA-Public Use
  Company Number: None

PATIENT
  Sex: Male

DRUGS (1)
  1. TESTOPEL [Suspect]
     Active Substance: TESTOSTERONE
     Indication: TESTICULAR FAILURE
     Dosage: ? OTHER DOSE:7 PELLETS ;OTHER FREQUENCY:EVERY 3?4 MONTHS ;?
     Route: 058
     Dates: start: 20191210

REACTIONS (2)
  - Therapy interrupted [None]
  - Neoplasm malignant [None]
